FAERS Safety Report 4949238-5 (Version None)
Quarter: 2006Q1

REPORT INFORMATION
  Report Type: 
  Country: None (occurrence: None)
  Receive Date: 20060321
  Receipt Date: 20060116
  Transmission Date: 20060701
  Serious: Yes (Death, Life-Threatening)
  Sender: FDA-Public Use
  Company Number: FR-BRISTOL-MYERS SQUIBB COMPANY-13252200

PATIENT
  Age: 68 Year
  Sex: Male

DRUGS (16)
  1. CETUXIMAB [Suspect]
     Indication: NON-SMALL CELL LUNG CANCER
     Route: 041
     Dates: start: 20060104
  2. CISPLATIN [Suspect]
     Indication: NON-SMALL CELL LUNG CANCER
     Route: 042
     Dates: start: 20060104
  3. VINORELBINE [Suspect]
     Indication: NON-SMALL CELL LUNG CANCER
     Route: 042
     Dates: start: 20060104
  4. METOCLOPRAMIDE [Concomitant]
  5. ONDANSETRON [Concomitant]
  6. SYMBICORT [Concomitant]
  7. LOVENOX [Concomitant]
  8. DEXCHLORPHENIRAMINE [Concomitant]
  9. BECLOMETHASONE DIPROPIONATE [Concomitant]
  10. SALBUTAMOL [Concomitant]
  11. FUROSEMIDE [Concomitant]
  12. DICLOFENAC EPOLAMINE PATCH [Concomitant]
  13. POTASSIUM CHLORIDE [Concomitant]
  14. VALSARTAN [Concomitant]
  15. DIANTALVIC [Concomitant]
  16. METHYLPREDNISOLONE [Concomitant]

REACTIONS (5)
  - ALANINE AMINOTRANSFERASE INCREASED [None]
  - ASPARTATE AMINOTRANSFERASE INCREASED [None]
  - ATRIOVENTRICULAR BLOCK SECOND DEGREE [None]
  - CARDIOGENIC SHOCK [None]
  - MYOCARDIAL INFARCTION [None]
